FAERS Safety Report 4777871-2 (Version None)
Quarter: 2005Q3

REPORT INFORMATION
  Report Type: 
  Country: None (occurrence: None)
  Receive Date: 20050926
  Receipt Date: 20041213
  Transmission Date: 20060218
  Serious: Yes (Hospitalization)
  Sender: FDA-Public Use
  Company Number: US-2004-BP-13714BP

PATIENT
  Age: 71 Year
  Sex: Female

DRUGS (6)
  1. SPIRIVA [Suspect]
     Route: 055
     Dates: start: 20041101, end: 20041101
  2. OXYGEN [Concomitant]
     Dosage: 2L  24 HOURS DAILY
  3. OXYGEN [Concomitant]
     Dosage: UP TO 10 L
  4. OXYGEN [Concomitant]
     Dosage: 2 L AT NIGHT
  5. XANAX [Concomitant]
  6. TYLENOL (CAPLET) [Concomitant]

REACTIONS (8)
  - BLOOD PRESSURE DECREASED [None]
  - DELIRIUM [None]
  - DYSPNOEA EXACERBATED [None]
  - EATING DISORDER SYMPTOM [None]
  - GINGIVAL DISCOLOURATION [None]
  - ORAL PAIN [None]
  - TOOTH EXTRACTION [None]
  - TOOTHACHE [None]
